FAERS Safety Report 8681535 (Version 2)
Quarter: 2013Q1

REPORT INFORMATION
  Report Type: Spontaneous
  Country: MX (occurrence: MX)
  Receive Date: 20120725
  Receipt Date: 20130305
  Transmission Date: 20140127
  Serious: Yes (Other)
  Sender: FDA-Public Use
  Company Number: PHHY2012MX062899

PATIENT
  Age: 67 Year
  Sex: Female

DRUGS (1)
  1. ACLASTA [Suspect]
     Indication: OSTEOPOROSIS
     Dosage: 5 MG/100 ML, YEARLY
     Route: 042
     Dates: start: 201205

REACTIONS (2)
  - Myocardial infarction [Recovering/Resolving]
  - Arterial occlusive disease [Recovering/Resolving]
